FAERS Safety Report 17208728 (Version 1)
Quarter: 2019Q4

REPORT INFORMATION
  Report Type: Spontaneous
  Country: US (occurrence: US)
  Receive Date: 20191227
  Receipt Date: 20191227
  Transmission Date: 20200122
  Serious: No
  Sender: FDA-Public Use
  Company Number: US-PFIZER INC-2019553200

PATIENT
  Age: 54 Year
  Sex: Male

DRUGS (2)
  1. VIAGRA [Suspect]
     Active Substance: SILDENAFIL CITRATE
     Dosage: UNK, AS NEEDED (LESS THAN 100MG AS NEEDED BY MOUTH)
     Route: 048
  2. VIAGRA [Suspect]
     Active Substance: SILDENAFIL CITRATE
     Dosage: UNK (CUTS THE TABLETS IN HALF SOMETIMES, OR MORE SOMETIMES)

REACTIONS (1)
  - Erection increased [Unknown]
